FAERS Safety Report 15347355 (Version 1)
Quarter: 2018Q3

REPORT INFORMATION
  Report Type: Spontaneous
  Country: US (occurrence: US)
  Receive Date: 20180904
  Receipt Date: 20180904
  Transmission Date: 20181010
  Serious: Yes (Hospitalization)
  Sender: FDA-Public Use
  Company Number: US-ASTRAZENECA-2018SF08907

PATIENT
  Sex: Female
  Weight: 76.2 kg

DRUGS (5)
  1. SYMBICORT [Suspect]
     Active Substance: BUDESONIDE\FORMOTEROL FUMARATE DIHYDRATE
     Indication: EMPHYSEMA
     Dosage: ONE PUFF, TWO TIMES A DAY
     Route: 055
     Dates: start: 2016, end: 201805
  2. BREO ELLIPTA [Concomitant]
     Active Substance: FLUTICASONE FUROATE\VILANTEROL TRIFENATATE
     Indication: EMPHYSEMA
     Dosage: 100 MCG/25MCG FOR COPD AND ONE PUFF, TWO TIMES A DAY FOR EMPHYSEMA
     Route: 055
     Dates: start: 2018
  3. BREO ELLIPTA [Concomitant]
     Active Substance: FLUTICASONE FUROATE\VILANTEROL TRIFENATATE
     Indication: CHRONIC OBSTRUCTIVE PULMONARY DISEASE
     Dosage: 100 MCG/25MCG FOR COPD AND ONE PUFF, TWO TIMES A DAY FOR EMPHYSEMA
     Route: 055
     Dates: start: 2018
  4. SYMBICORT [Suspect]
     Active Substance: BUDESONIDE\FORMOTEROL FUMARATE DIHYDRATE
     Indication: CHRONIC OBSTRUCTIVE PULMONARY DISEASE
     Dosage: ONE PUFF, TWO TIMES A DAY
     Route: 055
     Dates: start: 2016, end: 201805
  5. COMBIVENT RESPIMANT [Concomitant]
     Indication: INHALATION THERAPY
     Dosage: ONE PUFF EVERY FOUR HOURS AS NEEDED
     Route: 055
     Dates: start: 2018

REACTIONS (4)
  - Hypokinesia [Unknown]
  - Therapy cessation [Unknown]
  - Chronic obstructive pulmonary disease [Unknown]
  - Gas poisoning [Unknown]

NARRATIVE: CASE EVENT DATE: 20180823
